FAERS Safety Report 21922793 (Version 1)
Quarter: 2023Q1

REPORT INFORMATION
  Report Type: Spontaneous
  Country: US (occurrence: US)
  Receive Date: 20230128
  Receipt Date: 20230128
  Transmission Date: 20230418
  Serious: No
  Sender: FDA-Public Use
  Company Number: US-drreddys-SPO/USA/22/0158459

PATIENT
  Age: 70 Year
  Sex: Female

DRUGS (11)
  1. LENALIDOMIDE [Suspect]
     Active Substance: LENALIDOMIDE
     Indication: Thyroid mass
     Dosage: TAKE 1 CAPSULE BY MOUTH EVERY DAY FOR 14 DAYS ON THEN 7 DAYS OFF
     Route: 048
     Dates: start: 20221104
  2. ATORVASTATIN [Concomitant]
     Active Substance: ATORVASTATIN
     Indication: Product used for unknown indication
  3. ONDANSETRON [Concomitant]
     Active Substance: ONDANSETRON
     Indication: Product used for unknown indication
  4. PANTOPRAZOLE SODIUM [Concomitant]
     Active Substance: PANTOPRAZOLE SODIUM
     Indication: Product used for unknown indication
  5. VELCADE SOL 3.5MG [Concomitant]
     Indication: Product used for unknown indication
     Dosage: SOL 3.5MG
  6. DARZALEX FAS SOL 1800-300 [Concomitant]
     Indication: Product used for unknown indication
     Dosage: SOL 1800-300
  7. ACYCLOVIR [Concomitant]
     Active Substance: ACYCLOVIR
     Indication: Product used for unknown indication
  8. AMLODIPINE B TAB 10MG [Concomitant]
     Indication: Product used for unknown indication
  9. DEXAMETHASONE [Concomitant]
     Active Substance: DEXAMETHASONE
     Indication: Product used for unknown indication
  10. HYDRALAZINE TAB 50MG [Concomitant]
     Indication: Product used for unknown indication
  11. OXYCODONE HC TAB 5MG [Concomitant]
     Indication: Product used for unknown indication

REACTIONS (4)
  - Headache [Recovered/Resolved]
  - Product administration interrupted [Unknown]
  - Product use in unapproved indication [Unknown]
  - Product use issue [Unknown]
